FAERS Safety Report 4974600-4 (Version None)
Quarter: 2006Q1

REPORT INFORMATION
  Report Type: 
  Country: None (occurrence: None)
  Receive Date: 20060227
  Receipt Date: 20051202
  Transmission Date: 20060701
  Serious: No
  Sender: FDA-Public Use
  Company Number: PHEH2005US13176

PATIENT
  Age: 84 Year
  Sex: Male

DRUGS (2)
  1. ENABLEX [Suspect]
     Indication: POLLAKIURIA
     Dosage: 7.5 MG/UN
  2. NORTRIPTYLINE (NORTRIPTYLINE) [Suspect]

REACTIONS (2)
  - DRUG INTERACTION [None]
  - FEELING ABNORMAL [None]
